FAERS Safety Report 22006431 (Version 1)
Quarter: 2023Q1

REPORT INFORMATION
  Report Type: Spontaneous
  Country: IT (occurrence: IT)
  Receive Date: 20230217
  Receipt Date: 20230217
  Transmission Date: 20230418
  Serious: Yes (Other)
  Sender: FDA-Public Use
  Company Number: IT-AMICUS THERAPEUTICS, INC.-AMI_2228

PATIENT
  Age: 73 Year
  Sex: Male

DRUGS (1)
  1. MIGALASTAT HYDROCHLORIDE [Suspect]
     Active Substance: MIGALASTAT HYDROCHLORIDE
     Indication: Fabry^s disease
     Dosage: 123 MILLIGRAM, EVERY OTHER DAY
     Route: 048
     Dates: start: 202003, end: 202201

REACTIONS (1)
  - Renal impairment [Recovering/Resolving]

NARRATIVE: CASE EVENT DATE: 20220101
